FAERS Safety Report 13554881 (Version 1)
Quarter: 2017Q2

REPORT INFORMATION
  Report Type: Spontaneous
  Country: US (occurrence: US)
  Receive Date: 20170516
  Receipt Date: 20170516
  Transmission Date: 20170830
  Serious: Yes (Life-Threatening)
  Sender: FDA-Public Use
  Company Number: None

PATIENT
  Age: 70 Year
  Sex: Male
  Weight: 84.3 kg

DRUGS (2)
  1. FUROSEMIDE. [Suspect]
     Active Substance: FUROSEMIDE
     Indication: CARDIAC FAILURE CONGESTIVE
     Route: 042
     Dates: start: 20150424, end: 20150424
  2. ALBUTEROL. [Suspect]
     Active Substance: ALBUTEROL
     Indication: CHRONIC OBSTRUCTIVE PULMONARY DISEASE
     Route: 055
     Dates: start: 20150414, end: 20150501

REACTIONS (6)
  - Atrial fibrillation [None]
  - Hypotension [None]
  - Hypokalaemia [None]
  - Atrial flutter [None]
  - Sinus tachycardia [None]
  - Hypomagnesaemia [None]

NARRATIVE: CASE EVENT DATE: 20150424
